FAERS Safety Report 21372756 (Version 7)
Quarter: 2023Q2

REPORT INFORMATION
  Report Type: Report from Study
  Country: JP (occurrence: None)
  Receive Date: 20220924
  Receipt Date: 20230628
  Transmission Date: 20230721
  Serious: Yes (Hospitalization)
  Sender: FDA-Public Use
  Company Number: JP-ROCHE-3178406

PATIENT
  Age: 78 Year
  Sex: Female

DRUGS (13)
  1. FARICIMAB [Suspect]
     Active Substance: FARICIMAB
     Indication: Neovascular age-related macular degeneration
     Dosage: MOST RECENT DOSE(6MG) OF STUDY DRUG PRIOR TO SAE WAS ON 29-AUG-2022 12:35 PM?MOST RECENT DOSE(MASKED
     Route: 050
     Dates: start: 20220214
  2. SODIUM HYALURONATE [Concomitant]
     Active Substance: HYALURONATE SODIUM
     Indication: Dry eye
     Route: 047
     Dates: start: 20190805
  3. BROTIZOLAM [Concomitant]
     Active Substance: BROTIZOLAM
     Indication: Insomnia
     Route: 048
     Dates: start: 20181024
  4. CLOTIAZEPAM [Concomitant]
     Active Substance: CLOTIAZEPAM
     Indication: Anxiety
     Route: 048
     Dates: start: 20180507
  5. LOXOPROFEN [Concomitant]
     Active Substance: LOXOPROFEN
     Dates: start: 20220411, end: 20220415
  6. DICLOFENAC [Concomitant]
     Active Substance: DICLOFENAC
     Route: 061
     Dates: start: 20220411, end: 20220513
  7. LEVOFLOXACIN HEMIHYDRATE [Concomitant]
     Active Substance: LEVOFLOXACIN
     Indication: Infection prophylaxis
     Route: 047
     Dates: start: 20220910, end: 20221208
  8. DICLOFENAC SODIUM [Concomitant]
     Active Substance: DICLOFENAC SODIUM
     Route: 047
     Dates: start: 20220910, end: 20221208
  9. FLUOROMETHOLONE [Concomitant]
     Active Substance: FLUOROMETHOLONE
     Route: 047
     Dates: start: 20220910, end: 20221020
  10. OFLOXACIN [Concomitant]
     Active Substance: OFLOXACIN
     Route: 047
     Dates: start: 20220913, end: 20220913
  11. POVIDONE-IODINE [Concomitant]
     Active Substance: POVIDONE-IODINE
     Indication: Infection prophylaxis
     Route: 047
     Dates: start: 20220913, end: 20220913
  12. PA IODO [Concomitant]
     Indication: Infection prophylaxis
     Route: 047
     Dates: start: 20220913, end: 20220913
  13. SODIUM HYALURONATE [Concomitant]
     Active Substance: HYALURONATE SODIUM
     Route: 047
     Dates: start: 20220913, end: 20220913

REACTIONS (1)
  - Cataract [Recovered/Resolved]

NARRATIVE: CASE EVENT DATE: 20220214
